FAERS Safety Report 4397596-5 (Version None)
Quarter: 2004Q3

REPORT INFORMATION
  Report Type: 
  Country: None (occurrence: None)
  Receive Date: 20040712
  Receipt Date: 20040702
  Transmission Date: 20050211
  Serious: Yes (Hospitalization)
  Sender: FDA-Public Use
  Company Number: 2004-07-0149

PATIENT
  Age: 85 Year
  Sex: Female

DRUGS (4)
  1. FLUITRAN TABLETS ^LIKE NAQUA^ [Suspect]
     Indication: HYPERTENSION
     Dosage: 4 MG QD/2 MG QD
     Route: 048
     Dates: start: 20021220, end: 20030527
  2. FLUITRAN TABLETS ^LIKE NAQUA^ [Suspect]
     Indication: HYPERTENSION
     Dosage: 4 MG QD/2 MG QD
     Route: 048
     Dates: start: 20030527, end: 20030607
  3. FLUITRAN TABLETS ^LIKE NAQUA^ [Suspect]
     Indication: HYPERTENSION
     Dosage: 4 MG QD/2 MG QD
     Route: 048
     Dates: start: 20030708, end: 20031016
  4. LANDEL (EFONIDIPINE) [Concomitant]

REACTIONS (5)
  - BLOOD CHOLESTEROL INCREASED [None]
  - BLOOD PRESSURE INCREASED [None]
  - BLOOD TRIGLYCERIDES INCREASED [None]
  - NEPHROTIC SYNDROME [None]
  - OEDEMA PERIPHERAL [None]
